FAERS Safety Report 19507752 (Version 1)
Quarter: 2021Q3

REPORT INFORMATION
  Report Type: Spontaneous
  Country: US (occurrence: US)
  Receive Date: 20210708
  Receipt Date: 20210708
  Transmission Date: 20211014
  Serious: No
  Sender: FDA-Public Use
  Company Number: US-SOMERSET-2021-US-000238

PATIENT
  Age: 80 Year
  Sex: Female

DRUGS (2)
  1. DORZOLAMIDE HYDROCHLORIDE AND TIMOLOL MALEATE OPHTHALMIC [Suspect]
     Active Substance: DORZOLAMIDE HYDROCHLORIDE\TIMOLOL MALEATE
     Dates: start: 20210219
  2. HYDROCORTISONE .1% CREAM [Interacting]
     Active Substance: HYDROCORTISONE
     Route: 050
     Dates: start: 20210329

REACTIONS (6)
  - Skin irritation [Recovering/Resolving]
  - Alopecia [Recovered/Resolved]
  - Fatigue [Recovering/Resolving]
  - Swelling of eyelid [Recovering/Resolving]
  - Eye pain [Recovered/Resolved]
  - Swelling face [Recovering/Resolving]

NARRATIVE: CASE EVENT DATE: 20201105
